FAERS Safety Report 25422692 (Version 1)
Quarter: 2025Q2

REPORT INFORMATION
  Report Type: Spontaneous
  Country: US (occurrence: US)
  Receive Date: 20250611
  Receipt Date: 20250611
  Transmission Date: 20250716
  Serious: No
  Sender: BRAEBURN PHARMACEUTICALS
  Company Number: 2025-0035498

PATIENT

DRUGS (14)
  1. BRIXADI [Suspect]
     Active Substance: BUPRENORPHINE
     Indication: Product used for unknown indication
     Dosage: 64 MILLIGRAMS, MONTHLY ON LEFT ARM
     Route: 065
     Dates: start: 20240110
  2. BRIXADI [Suspect]
     Active Substance: BUPRENORPHINE
     Dosage: 64 MILLIGRAM, MONTHLY ON RIGHT ARM
     Route: 065
     Dates: start: 20240207
  3. BRIXADI [Suspect]
     Active Substance: BUPRENORPHINE
     Dosage: 96 MILLIGRAM, MONTHLY ON LEFT ARM
     Route: 065
     Dates: start: 20240306
  4. BRIXADI [Suspect]
     Active Substance: BUPRENORPHINE
     Dosage: 96 MILLIGRAM, MONTHLY ON RIGHT ARM
     Route: 065
     Dates: start: 20240327
  5. BRIXADI [Suspect]
     Active Substance: BUPRENORPHINE
     Dosage: 96 MILLIGRAM, MONTHLY ON LEFT ARM
     Route: 065
     Dates: start: 20240521
  6. BRIXADI [Suspect]
     Active Substance: BUPRENORPHINE
     Dosage: 128 MILLIGRAM, MONTHLY ON RIGHT ARM
     Route: 065
     Dates: start: 20240620
  7. BRIXADI [Suspect]
     Active Substance: BUPRENORPHINE
     Dosage: 128 MILLIGRAM, MONTHLY ON LEFT ARM
     Route: 065
     Dates: start: 20240718
  8. BRIXADI [Suspect]
     Active Substance: BUPRENORPHINE
     Dosage: 128 MILLIGRAM, MONTHLY ON LEFT ARM
     Route: 065
     Dates: start: 20240826
  9. BRIXADI [Suspect]
     Active Substance: BUPRENORPHINE
     Dosage: 128 MILLIGRAM, MONTHLY ON RIGHT ARM
     Route: 065
     Dates: start: 20240925
  10. BRIXADI [Suspect]
     Active Substance: BUPRENORPHINE
     Dosage: 128 MILLIGRAM, MONTHLY ON LEFT ARM
     Route: 065
     Dates: start: 20241023
  11. BRIXADI [Suspect]
     Active Substance: BUPRENORPHINE
     Dosage: 128 MILLIGRAM, MONTHLY, ON RIGHT ARM
     Route: 065
     Dates: start: 20241120
  12. BRIXADI [Suspect]
     Active Substance: BUPRENORPHINE
     Dosage: 128 MILLIGRAM, MONTHLY, ON RIGHT GLUTE
     Route: 065
     Dates: start: 20241217
  13. BRIXADI [Suspect]
     Active Substance: BUPRENORPHINE
     Dosage: 128 MILLIGRAM, MONTHLY, ON LEFT ARM
     Route: 065
     Dates: start: 20250116
  14. SUBOXONE [Concomitant]
     Active Substance: BUPRENORPHINE HYDROCHLORIDE\NALOXONE HYDROCHLORIDE
     Indication: Product used for unknown indication
     Route: 065

REACTIONS (2)
  - Drug clearance increased [Unknown]
  - Withdrawal syndrome [Unknown]

NARRATIVE: CASE EVENT DATE: 20240101
